FAERS Safety Report 13166995 (Version 4)
Quarter: 2017Q3

REPORT INFORMATION
  Report Type: Report from Study
  Country: IN (occurrence: IN)
  Receive Date: 20170131
  Receipt Date: 20170914
  Transmission Date: 20171127
  Serious: Yes (Hospitalization, Other)
  Sender: FDA-Public Use
  Company Number: PHHY2016IN163472

PATIENT
  Age: 35 Year
  Sex: Female
  Weight: 48 kg

DRUGS (9)
  1. TASIGNA [Suspect]
     Active Substance: NILOTINIB
     Dosage: 200 MG, BID
     Route: 048
     Dates: end: 201701
  2. TASIGNA [Suspect]
     Active Substance: NILOTINIB
     Dosage: 400 MG, BID
     Route: 048
     Dates: start: 201701
  3. NICORANDIL [Suspect]
     Active Substance: NICORANDIL
     Indication: BLOOD DISORDER
     Dosage: 10 MG, BID
     Route: 048
     Dates: start: 201606
  4. ASPIRIN. [Suspect]
     Active Substance: ASPIRIN
     Indication: BLOOD DISORDER
     Dosage: 75 MG, QD
     Route: 048
     Dates: start: 2014
  5. TASIGNA [Suspect]
     Active Substance: NILOTINIB
     Dosage: 200 MG, BID
     Route: 048
     Dates: start: 201708
  6. TASIGNA [Suspect]
     Active Substance: NILOTINIB
     Dosage: 200 MG, BID
     Route: 048
     Dates: end: 20170622
  7. TASIGNA [Suspect]
     Active Substance: NILOTINIB
     Indication: CHRONIC MYELOID LEUKAEMIA
     Dosage: 400 MG, BID
     Route: 048
     Dates: start: 20161021, end: 201610
  8. TASIGNA [Suspect]
     Active Substance: NILOTINIB
     Dosage: 400 MG, BID
     Route: 048
     Dates: start: 20161101
  9. TASIGNA [Suspect]
     Active Substance: NILOTINIB
     Dosage: 400 MG, BID
     Route: 048
     Dates: start: 20170622, end: 201708

REACTIONS (13)
  - Pancytopenia [Recovered/Resolved]
  - Anaemia [Recovering/Resolving]
  - Platelet count abnormal [Recovering/Resolving]
  - White blood cell count decreased [Unknown]
  - Thrombocytosis [Not Recovered/Not Resolved]
  - Vascular occlusion [Recovering/Resolving]
  - White blood cell disorder [Unknown]
  - Pneumonia [Not Recovered/Not Resolved]
  - Leukopenia [Not Recovered/Not Resolved]
  - Platelet count decreased [Unknown]
  - Hyperthermia [Not Recovered/Not Resolved]
  - Skin discolouration [Recovering/Resolving]
  - Myocardial infarction [Recovered/Resolved]

NARRATIVE: CASE EVENT DATE: 201610
